FAERS Safety Report 15542534 (Version 1)
Quarter: 2018Q4

REPORT INFORMATION
  Report Type: Spontaneous
  Country: US (occurrence: US)
  Receive Date: 20181023
  Receipt Date: 20181023
  Transmission Date: 20190205
  Serious: No
  Sender: FDA-Public Use
  Company Number: US-ABBVIE-18P-163-2220515-00

PATIENT
  Sex: Female

DRUGS (1)
  1. LUPRON DEPOT [Suspect]
     Active Substance: LEUPROLIDE ACETATE
     Indication: ENDOMETRIOSIS
     Route: 030
     Dates: start: 201705, end: 201708

REACTIONS (3)
  - Vulvovaginal dryness [Not Recovered/Not Resolved]
  - Pelvic pain [Not Recovered/Not Resolved]
  - Atrophic vulvovaginitis [Not Recovered/Not Resolved]

NARRATIVE: CASE EVENT DATE: 201705
